FAERS Safety Report 25690345 (Version 1)
Quarter: 2025Q3

REPORT INFORMATION
  Report Type: Spontaneous
  Country: US (occurrence: None)
  Receive Date: 20250816
  Receipt Date: 20250816
  Transmission Date: 20251021
  Serious: No
  Sender: FDA-CTU
  Company Number: None

PATIENT
  Age: 15 Month
  Sex: Female
  Weight: 8.8 kg

DRUGS (6)
  1. CYCLOPHOSPHAMIDE [Suspect]
     Active Substance: CYCLOPHOSPHAMIDE
  2. ZINECARD [Suspect]
     Active Substance: DEXRAZOXANE HYDROCHLORIDE
  3. DOXORUBICIN HYDROCHLORIDE [Suspect]
     Active Substance: DOXORUBICIN HYDROCHLORIDE
  4. FILGRASTIM [Suspect]
     Active Substance: FILGRASTIM
  5. MESNA [Suspect]
     Active Substance: MESNA
  6. VINCRISTINE SULFATE [Suspect]
     Active Substance: VINCRISTINE SULFATE

REACTIONS (4)
  - Pain [None]
  - Mucosal inflammation [None]
  - Pyrexia [None]
  - Febrile neutropenia [None]

NARRATIVE: CASE EVENT DATE: 20250622
